FAERS Safety Report 6296622-6 (Version None)
Quarter: 2009Q3

REPORT INFORMATION
  Report Type: 
  Country: None (occurrence: None)
  Receive Date: 20090804
  Receipt Date: 20090723
  Transmission Date: 20100115
  Serious: Yes (Hospitalization, Other)
  Sender: FDA-Public Use
  Company Number: FR-BRISTOL-MYERS SQUIBB COMPANY-14722524

PATIENT
  Age: 69 Year
  Sex: Female

DRUGS (10)
  1. GLUCOPHAGE [Suspect]
     Indication: TYPE 2 DIABETES MELLITUS
     Dosage: TOTAL DOSE-1000MG.STRENGTH-500MG TAB.
     Route: 048
     Dates: start: 20050101
  2. FRACTAL [Concomitant]
     Dosage: FRACTAL(80 MG, PROLONGED-RELEASE TABLET)
     Route: 048
  3. KENZEN [Concomitant]
     Dosage: STRENGTH-16MG TAB.
     Route: 048
  4. SEROPLEX [Concomitant]
     Dosage: STRENGTH-20MG TAB.
     Route: 048
     Dates: start: 20050901
  5. SOTALEX [Concomitant]
     Dosage: STRENGTH-80MG TAB.
     Route: 048
     Dates: start: 20050401, end: 20090610
  6. KARDEGIC [Concomitant]
     Dosage: STRENGTH-75MG POWDER AND SOLVENT FOR ORAL SOLUTION
     Route: 048
     Dates: start: 20050401
  7. LASIX [Concomitant]
     Dosage: STRENGTH-20MG TAB.
     Route: 048
     Dates: start: 20050401, end: 20090610
  8. STILNOX [Concomitant]
     Dosage: STRENGTH-10MG TAB.
     Route: 048
     Dates: end: 20090610
  9. ZYLORIC [Concomitant]
     Route: 048
     Dates: start: 20050401
  10. LEVOTHYROX [Concomitant]
     Dosage: LEVOTHYROX 50(50 MICROGRAM TABLET)
     Route: 048

REACTIONS (5)
  - BUNDLE BRANCH BLOCK LEFT [None]
  - ELECTROCARDIOGRAM QT PROLONGED [None]
  - LACTIC ACIDOSIS [None]
  - ORTHOSTATIC HYPOTENSION [None]
  - RENAL FAILURE ACUTE [None]
